FAERS Safety Report 7704481-7 (Version None)
Quarter: 2011Q3

REPORT INFORMATION
  Report Type: 
  Country: None (occurrence: None)
  Receive Date: 20110823
  Receipt Date: 20110818
  Transmission Date: 20111222
  Serious: Yes (Hospitalization)
  Sender: FDA-Public Use
  Company Number: DE-PFIZER INC-DE-WYE-H14357210

PATIENT
  Age: 20 Year
  Sex: Female
  Weight: 60 kg

DRUGS (5)
  1. PANTOPRAZOLE [Suspect]
     Dosage: OVERDOSE AMOUNT WAS FIVE 20 MG TABLETS
     Route: 048
     Dates: start: 20100328, end: 20100328
  2. INDOMETHACIN [Suspect]
     Dosage: OVERDOSE AMOUNT WAS TWELVE 50MG TABLETS
     Route: 048
     Dates: start: 20100328, end: 20100328
  3. IBUPROFEN [Suspect]
     Dosage: OVERDOSE AMOUNT WAS PROBABLY 4 TABLETS, DOSAGE UNKNOWN
     Route: 048
     Dates: start: 20100328, end: 20100328
  4. ACETAMINOPHEN [Suspect]
     Dosage: OVERDOSE AMOUNT WAS 2000 MG
     Route: 048
     Dates: start: 20100328, end: 20100328
  5. ETHANOL [Suspect]
     Dosage: UNKNOWN AMOUNTS OF RED WINE AND BEER
     Route: 048

REACTIONS (3)
  - VOMITING [None]
  - INTENTIONAL OVERDOSE [None]
  - SUICIDE ATTEMPT [None]
